FAERS Safety Report 9804179 (Version 4)
Quarter: 2014Q1

REPORT INFORMATION
  Report Type: Report from Study
  Country: US (occurrence: US)
  Receive Date: 20140108
  Receipt Date: 20140226
  Transmission Date: 20141002
  Serious: Yes (Death, Other)
  Sender: FDA-Public Use
  Company Number: US-PFIZER INC-2013367933

PATIENT
  Age: 74 Year
  Sex: Male
  Weight: 92.06 kg

DRUGS (2)
  1. CELEBREX [Suspect]
     Indication: ARTHRITIS
     Dosage: UNK, 2X/DAY
     Route: 048
     Dates: start: 2012, end: 201211
  2. ATENOLOL [Concomitant]
     Indication: HYPERTENSION
     Dosage: UNK

REACTIONS (3)
  - Haemorrhagic anaemia [Fatal]
  - Ulcer haemorrhage [Unknown]
  - Anaemia [Unknown]
